FAERS Safety Report 9025068 (Version 3)
Quarter: 2013Q1

REPORT INFORMATION
  Report Type: Spontaneous
  Country: US (occurrence: US)
  Receive Date: 20130121
  Receipt Date: 20130322
  Transmission Date: 20140127
  Serious: Yes (Hospitalization, Other)
  Sender: FDA-Public Use
  Company Number: US-JNJFOC-20130106292

PATIENT
  Age: 75 None
  Sex: Male
  Weight: 89.36 kg

DRUGS (37)
  1. XARELTO [Suspect]
     Indication: CEREBROVASCULAR ACCIDENT PROPHYLAXIS
     Route: 048
     Dates: start: 20120612
  2. XARELTO [Suspect]
     Indication: ATRIAL FIBRILLATION
     Route: 048
     Dates: start: 20120612
  3. CLOPIDOGREL [Suspect]
     Indication: ANTIPLATELET THERAPY
     Route: 065
  4. ASPIRIN [Concomitant]
     Route: 048
  5. ASPIRIN [Concomitant]
     Route: 048
  6. GLIPIZIDE [Concomitant]
     Route: 065
  7. LANTUS INSULIN [Concomitant]
     Route: 065
  8. MICARDIS [Concomitant]
     Route: 065
  9. MULTAQ [Concomitant]
     Route: 065
  10. SPIRIVA [Concomitant]
     Route: 055
  11. GLUCOPHAGE [Concomitant]
     Route: 065
  12. PROVENTIL [Concomitant]
     Route: 055
  13. ADVAIR [Concomitant]
     Route: 055
  14. VYTORIN [Concomitant]
     Route: 065
  15. MIRTAZAPINE [Concomitant]
     Route: 065
  16. IMDUR [Concomitant]
     Route: 065
  17. VITAMINS NOS [Concomitant]
     Route: 065
  18. VITAMIN C [Concomitant]
     Route: 048
  19. VITAMIN D3 [Concomitant]
     Route: 048
  20. CINNAMON [Concomitant]
     Route: 048
  21. LASIX [Concomitant]
     Dosage: 1 TABLET DAILY
     Route: 048
  22. NITROGLYCERINE [Concomitant]
     Dosage: 0.4 TABLET, 1 TABLET AS NECESSARY
     Route: 060
  23. UNSPECIFIED NEBULIZER [Concomitant]
     Route: 055
  24. COUMADIN [Concomitant]
     Route: 065
  25. AMBIEN [Concomitant]
     Route: 065
  26. ULTRAM [Concomitant]
     Route: 065
  27. SYMBICORT [Concomitant]
     Dosage: 160MCG - 4.5 MCG / ACTUATION
     Route: 055
  28. XANAX [Concomitant]
     Dosage: 0.5 MG TABLET
     Route: 048
  29. VITAMIN B-COMPLEX [Concomitant]
     Dosage: 0.5 MG TABLET
     Route: 048
  30. TRAZODONE [Concomitant]
     Dosage: 0.5 MG TABLET
     Route: 048
  31. LIPITOR [Concomitant]
     Dosage: AT BEDTIME
     Route: 048
  32. PLAVIX [Concomitant]
     Route: 048
  33. CHONDROITIN COMPLEX [Concomitant]
     Route: 048
  34. DUONEB [Concomitant]
     Dosage: 0.5 - 3.0 MG/ 3ML
     Route: 055
  35. ALBUTEROL [Concomitant]
     Route: 055
  36. KEPPRA [Concomitant]
     Route: 048
  37. POTASSIUM CHLORIDE [Concomitant]
     Dosage: 20 MEQ TABLET
     Route: 048

REACTIONS (2)
  - Cerebrovascular accident [Unknown]
  - Epistaxis [Recovered/Resolved]
